FAERS Safety Report 4919529-2 (Version None)
Quarter: 2006Q1

REPORT INFORMATION
  Report Type: 
  Country: None (occurrence: None)
  Receive Date: 20060216
  Receipt Date: 20060125
  Transmission Date: 20060701
  Serious: Yes (Other)
  Sender: FDA-Public Use
  Company Number: AE2006-0119

PATIENT
  Age: 40 Year
  Sex: Female

DRUGS (1)
  1. MUCINEX D [Suspect]
     Indication: SINUS DISORDER
     Dosage: MG ONCE ORAL
     Route: 048
     Dates: start: 20060124, end: 20060124

REACTIONS (4)
  - DEMENTIA [None]
  - DIZZINESS [None]
  - HEART RATE INCREASED [None]
  - NAUSEA [None]
